FAERS Safety Report 14049822 (Version 1)
Quarter: 2017Q4

REPORT INFORMATION
  Report Type: Spontaneous
  Country: ES (occurrence: ES)
  Receive Date: 20171005
  Receipt Date: 20171005
  Transmission Date: 20180321
  Serious: Yes (Life-Threatening)
  Sender: FDA-Public Use
  Company Number: ES-PFIZER INC-2017426533

PATIENT
  Age: 58 Year
  Sex: Female

DRUGS (1)
  1. SUTENT [Suspect]
     Active Substance: SUNITINIB MALATE
     Dosage: 1 DF, 1X/DAY (EVERY 24 HOURS)
     Route: 048
     Dates: start: 20170510

REACTIONS (2)
  - Plantar erythema [Unknown]
  - Palmar erythema [Unknown]

NARRATIVE: CASE EVENT DATE: 20170530
